FAERS Safety Report 21690753 (Version 3)
Quarter: 2022Q4

REPORT INFORMATION
  Report Type: Report from Study
  Country: FR (occurrence: FR)
  Receive Date: 20221206
  Receipt Date: 20221229
  Transmission Date: 20230113
  Serious: Yes (Hospitalization, Other)
  Sender: FDA-Public Use
  Company Number: FR-SA-SAC20221118000604

PATIENT
  Age: 63 Year
  Sex: Female

DRUGS (12)
  1. ISATUXIMAB [Suspect]
     Active Substance: ISATUXIMAB
     Indication: Plasma cell myeloma
     Dosage: 530 MG, QW
     Route: 042
     Dates: start: 20221110, end: 20221110
  2. ISATUXIMAB [Suspect]
     Active Substance: ISATUXIMAB
     Dosage: 530 MG, QW
     Route: 042
     Dates: start: 20221104, end: 20221104
  3. ISATUXIMAB [Suspect]
     Active Substance: ISATUXIMAB
     Dosage: 530 MG, QW
     Route: 042
     Dates: start: 20221125, end: 20221125
  4. CARFILZOMIB [Suspect]
     Active Substance: CARFILZOMIB
     Indication: Plasma cell myeloma
     Dosage: 30 MG (DAY 1-8-15)
     Route: 042
     Dates: start: 20221104, end: 20221104
  5. CARFILZOMIB [Suspect]
     Active Substance: CARFILZOMIB
     Dosage: 84 MG (DAY 1-8-15)
     Route: 042
     Dates: start: 20221110, end: 20221110
  6. CARFILZOMIB [Suspect]
     Active Substance: CARFILZOMIB
     Dosage: 84 MG (DAY 1-8-15)
     Route: 042
     Dates: start: 20221118, end: 20221118
  7. LENALIDOMIDE [Suspect]
     Active Substance: LENALIDOMIDE
     Indication: Plasma cell myeloma
     Dosage: 25 MG, QD
     Route: 048
     Dates: start: 20221104, end: 20221104
  8. LENALIDOMIDE [Suspect]
     Active Substance: LENALIDOMIDE
     Dosage: 25 MG, QD
     Route: 048
     Dates: start: 20221116, end: 20221116
  9. LENALIDOMIDE [Suspect]
     Active Substance: LENALIDOMIDE
     Dosage: 25 MG, QD
     Route: 048
     Dates: start: 20221130, end: 20221130
  10. DEXAMETHASONE [Suspect]
     Active Substance: DEXAMETHASONE
     Indication: Plasma cell myeloma
     Dosage: 40 MG, QW
     Route: 048
     Dates: start: 20221110, end: 20221110
  11. DEXAMETHASONE [Suspect]
     Active Substance: DEXAMETHASONE
     Dosage: 40 MG, QW
     Route: 048
     Dates: start: 20221104, end: 20221104
  12. DEXAMETHASONE [Suspect]
     Active Substance: DEXAMETHASONE
     Dosage: 40 MG, QW
     Route: 048
     Dates: start: 20221125, end: 20221125

REACTIONS (3)
  - Pulmonary embolism [Recovering/Resolving]
  - Thoracic vertebral fracture [Recovered/Resolved with Sequelae]
  - Invasive ductal breast carcinoma [Not Recovered/Not Resolved]

NARRATIVE: CASE EVENT DATE: 20221114
